FAERS Safety Report 12933359 (Version 2)
Quarter: 2016Q4

REPORT INFORMATION
  Report Type: Spontaneous
  Country: US (occurrence: US)
  Receive Date: 20161111
  Receipt Date: 20161222
  Transmission Date: 20170207
  Serious: Yes (Death, Other)
  Sender: FDA-Public Use
  Company Number: US-INCYTE CORPORATION-2016IN007152

PATIENT
  Age: 89 Year
  Sex: Female
  Weight: 58.5 kg

DRUGS (3)
  1. JAKAFI [Suspect]
     Active Substance: RUXOLITINIB
     Dosage: 15 MG, BID
     Route: 048
     Dates: end: 20161026
  2. JAKAFI [Suspect]
     Active Substance: RUXOLITINIB
     Indication: MYELOFIBROSIS
     Dosage: 35MG, DAILY (10 MG AND 15 MG)
     Route: 048
     Dates: start: 20130920
  3. AFATINIB [Concomitant]
     Active Substance: AFATINIB
     Indication: PRODUCT USED FOR UNKNOWN INDICATION
     Dosage: UNK

REACTIONS (3)
  - Malaise [Fatal]
  - Acute myeloid leukaemia [Not Recovered/Not Resolved]
  - Chloroma [Not Recovered/Not Resolved]

NARRATIVE: CASE EVENT DATE: 20160908
